FAERS Safety Report 4806604-6 (Version None)
Quarter: 2005Q4

REPORT INFORMATION
  Report Type: 
  Country: None (occurrence: None)
  Receive Date: 20051019
  Receipt Date: 20050929
  Transmission Date: 20060501
  Serious: Yes (Other)
  Sender: FDA-Public Use
  Company Number: USA0510109919

PATIENT
  Sex: Female

DRUGS (4)
  1. CYMBALTA [Suspect]
     Dosage: 30 MG
  2. ELAVIL [Concomitant]
  3. DEPAKOTE [Concomitant]
  4. BETAPACE [Concomitant]

REACTIONS (1)
  - ARRHYTHMIA [None]
